FAERS Safety Report 12080927 (Version 1)
Quarter: 2016Q1

REPORT INFORMATION
  Report Type: Spontaneous
  Country: US (occurrence: US)
  Receive Date: 20160216
  Receipt Date: 20160216
  Transmission Date: 20160526
  Serious: No
  Sender: FDA-Public Use
  Company Number: US-PFIZER INC-2016082333

PATIENT
  Sex: Female

DRUGS (2)
  1. ACETAMINOPHEN. [Suspect]
     Active Substance: ACETAMINOPHEN
     Dosage: 2 DF, 2X/DAY
  2. ADVIL [Suspect]
     Active Substance: IBUPROFEN
     Dosage: 2 DF, 2X/DAY

REACTIONS (1)
  - Drug ineffective [Unknown]
